FAERS Safety Report 6084620-7 (Version None)
Quarter: 2009Q1

REPORT INFORMATION
  Report Type: 
  Country: None (occurrence: None)
  Receive Date: 20090219
  Receipt Date: 20090210
  Transmission Date: 20090719
  Serious: Yes (Hospitalization)
  Sender: FDA-Public Use
  Company Number: US-B.I. PHARMACEUTICALS,INC./RIDGEFIELD-2009-BP-01770BP

PATIENT
  Sex: Male

DRUGS (5)
  1. ZANTAC 150 [Suspect]
     Indication: GASTROOESOPHAGEAL REFLUX DISEASE
     Dosage: 300MG
     Route: 048
     Dates: start: 20000101
  2. LIPITOR [Concomitant]
     Indication: BLOOD CHOLESTEROL INCREASED
  3. CLONAZEPAM [Concomitant]
     Indication: MUSCLE SPASMS
  4. DIGOXIN [Concomitant]
     Indication: ARRHYTHMIA
  5. CHLODIAZEPOSIDE/CLIDINIUM [Concomitant]
     Indication: IRRITABLE BOWEL SYNDROME

REACTIONS (1)
  - CARDIOVASCULAR DISORDER [None]
